FAERS Safety Report 6277870-8 (Version None)
Quarter: 2009Q3

REPORT INFORMATION
  Report Type: 
  Country: None (occurrence: None)
  Receive Date: 20090722
  Receipt Date: 20090715
  Transmission Date: 20100115
  Serious: Yes (Hospitalization)
  Sender: FDA-Public Use
  Company Number: US-GILEAD-2009-0023115

PATIENT
  Sex: Female
  Weight: 81.72 kg

DRUGS (13)
  1. LETAIRIS [Suspect]
     Indication: PULMONARY ARTERIAL HYPERTENSION
     Route: 048
     Dates: start: 20090225
  2. COUMADIN [Concomitant]
  3. CARDIZEM [Concomitant]
  4. DIGOXIN [Concomitant]
  5. LASIX [Concomitant]
  6. MONOPRIL [Concomitant]
  7. REVATIO [Concomitant]
  8. FLOLAN [Concomitant]
     Route: 042
  9. AMBIEN [Concomitant]
  10. MICRO-K [Concomitant]
  11. NEURONTIN [Concomitant]
  12. VICODIN [Concomitant]
  13. ELAVIL [Concomitant]

REACTIONS (1)
  - URINARY TRACT INFECTION [None]
